FAERS Safety Report 6081148-5 (Version None)
Quarter: 2009Q1

REPORT INFORMATION
  Report Type: 
  Country: None (occurrence: None)
  Receive Date: 20090213
  Receipt Date: 20090202
  Transmission Date: 20090719
  Serious: Yes (Death)
  Sender: FDA-Public Use
  Company Number: POMP-1000480

PATIENT
  Age: 53 Year
  Sex: Female
  Weight: 102 kg

DRUGS (3)
  1. MYOZYME [Suspect]
     Indication: GLYCOGEN STORAGE DISEASE TYPE II
     Dosage: 2050 MG, Q2W, INTRAVENOUS
     Route: 042
     Dates: start: 20080716, end: 20090114
  2. ACETYLCYSTEINE [Concomitant]
  3. INSIDON (OPIPRAMOL HYDROCHLORIDE) [Concomitant]

REACTIONS (9)
  - ABASIA [None]
  - BRONCHIAL SECRETION RETENTION [None]
  - BRONCHITIS [None]
  - BRONCHOPNEUMONIA [None]
  - CARDIOPULMONARY FAILURE [None]
  - DISEASE COMPLICATION [None]
  - INFLUENZA [None]
  - ORTHOPNOEA [None]
  - RESPIRATORY TRACT INFECTION [None]
